FAERS Safety Report 8876925 (Version 1)
Quarter: 2012Q4

REPORT INFORMATION
  Report Type: 
  Country: US (occurrence: US)
  Receive Date: 20121030
  Receipt Date: 20121030
  Transmission Date: 20130627
  Serious: Yes (Life-Threatening, Hospitalization)
  Sender: FDA-Public Use
  Company Number: US-MYLANLABS-2012S1021993

PATIENT
  Age: 41 Year
  Sex: Female

DRUGS (3)
  1. WARFARIN [Suspect]
     Indication: ANTICOAGULANT THERAPY
     Route: 065
  2. ENOXAPARIN SODIUM [Suspect]
     Indication: ANTICOAGULANT THERAPY
     Dosage: administered as a bridge to warfarin
     Route: 065
  3. ASPIRIN [Suspect]
     Route: 065

REACTIONS (2)
  - Haematochezia [Recovered/Resolved]
  - Haemodynamic instability [Recovered/Resolved]
